FAERS Safety Report 10424318 (Version 1)
Quarter: 2014Q3

REPORT INFORMATION
  Report Type: Spontaneous
  Country: US (occurrence: None)
  Receive Date: 20140722
  Receipt Date: 20140722
  Transmission Date: 20150326
  Serious: No
  Sender: FDA-Public Use
  Company Number: 163-10004-14044541

PATIENT
  Age: 66 Year
  Sex: Male
  Weight: 88.91 kg

DRUGS (3)
  1. FLOMAX (TAMSULOSIN) [Concomitant]
  2. GLUCOSAMINE CHONDROITIN (GLUCOSAMINE W/CHONDROITIN SULFATE) [Concomitant]
  3. OTEZLA [Suspect]
     Active Substance: APREMILAST
     Indication: PSORIASIS
     Dates: start: 20140414

REACTIONS (1)
  - Joint swelling [None]

NARRATIVE: CASE EVENT DATE: 20140424
